FAERS Safety Report 5521629-3 (Version None)
Quarter: 2007Q4

REPORT INFORMATION
  Report Type: 
  Country: None (occurrence: None)
  Receive Date: 20071119
  Receipt Date: 20071119
  Transmission Date: 20080405
  Serious: Yes (Hospitalization)
  Sender: FDA-Public Use
  Company Number: None

PATIENT
  Age: 62 Year
  Sex: Male
  Weight: 88.905 kg

DRUGS (1)
  1. ASPIRIN [Suspect]
     Indication: MYOCARDIAL INFARCTION
     Dosage: ONE 75MG  DAILY  PO
     Route: 048
     Dates: start: 20000919, end: 20071118

REACTIONS (4)
  - ARRHYTHMIA [None]
  - HYPERHIDROSIS [None]
  - PANIC ATTACK [None]
  - RESPIRATORY DISORDER [None]
